FAERS Safety Report 7404074-5 (Version None)
Quarter: 2011Q2

REPORT INFORMATION
  Report Type: 
  Country: None (occurrence: None)
  Receive Date: 20110408
  Receipt Date: 20110331
  Transmission Date: 20111010
  Serious: Yes (Other)
  Sender: FDA-Public Use
  Company Number: US-ASTRAZENECA-2011SE18457

PATIENT
  Age: 31 Year
  Sex: Female
  Weight: 69.9 kg

DRUGS (4)
  1. CIVOXONE [Concomitant]
     Indication: DRUG DEPENDENCE
  2. XANAX [Concomitant]
     Indication: ANXIETY
     Route: 048
  3. SEROQUEL XR [Suspect]
     Indication: BIPOLAR DISORDER
     Route: 048
     Dates: start: 20110219
  4. CYMBALTA [Concomitant]
     Route: 048
     Dates: start: 20110219

REACTIONS (1)
  - DRUG SCREEN POSITIVE [None]
